FAERS Safety Report 5292185-2 (Version None)
Quarter: 2007Q2

REPORT INFORMATION
  Report Type: 
  Country: None (occurrence: None)
  Receive Date: 20070410
  Receipt Date: 20070326
  Transmission Date: 20071010
  Serious: Yes (Death)
  Sender: FDA-Public Use
  Company Number: NO-JNJFOC-20070306183

PATIENT
  Sex: Female

DRUGS (4)
  1. REMICADE [Suspect]
     Indication: CROHN'S DISEASE
     Route: 042
  2. MYCOSTATIN [Concomitant]
     Indication: FUNGAL OESOPHAGITIS
     Route: 065
  3. CALCIGRAN FORTE [Concomitant]
     Indication: OSTEOPOROSIS PROPHYLAXIS
     Route: 065
  4. PREDNISOLONE [Concomitant]
     Indication: CROHN'S DISEASE
     Route: 065

REACTIONS (4)
  - GASTROINTESTINAL PAIN [None]
  - ILEUS [None]
  - INTESTINAL ISCHAEMIA [None]
  - VASCULAR OCCLUSION [None]
